FAERS Safety Report 8459186 (Version 11)
Quarter: 2013Q3

REPORT INFORMATION
  Report Type: Spontaneous
  Country: US (occurrence: US)
  Receive Date: 20120314
  Receipt Date: 20130816
  Transmission Date: 20140515
  Serious: Yes (Hospitalization)
  Sender: FDA-Public Use
  Company Number: US-B.I. PHARMACEUTICALS,INC./RIDGEFIELD-2012-BP-04355BP

PATIENT
  Age: 61 Year
  Sex: Female
  Weight: 68.04 kg

DRUGS (36)
  1. PRADAXA [Suspect]
     Indication: ATRIAL FIBRILLATION
     Dosage: 300 MG
     Route: 048
     Dates: start: 20110207, end: 20110309
  2. PRADAXA [Suspect]
     Indication: CEREBROVASCULAR ACCIDENT PROPHYLAXIS
     Dosage: 300 MG
     Route: 048
     Dates: start: 20110315, end: 20130428
  3. PRADAXA [Suspect]
     Dosage: 150 MG
     Route: 048
     Dates: start: 20130501, end: 20130603
  4. PLAVIX [Concomitant]
     Dates: start: 2007, end: 2012
  5. AMBIEN CR [Concomitant]
     Dosage: 12.5 MG
     Route: 048
     Dates: start: 2007, end: 2012
  6. ADVAIR [Concomitant]
     Route: 055
     Dates: start: 2008, end: 2012
  7. SPIRIVA [Concomitant]
     Dosage: 18 MCG
     Route: 055
     Dates: start: 2006, end: 2012
  8. VALIUM [Concomitant]
     Route: 048
     Dates: start: 2002, end: 2012
  9. CLONIDINE [Concomitant]
     Route: 048
     Dates: start: 2010, end: 2012
  10. MIRHLRY [Concomitant]
     Dates: start: 2006, end: 2012
  11. RANEXA [Concomitant]
     Dosage: 1000 MG
     Route: 048
     Dates: start: 2010, end: 2012
  12. GLUCOPHAGE [Concomitant]
     Dosage: 500 MG
     Dates: start: 2009, end: 2012
  13. ATENOID [Concomitant]
     Dates: start: 2011, end: 2012
  14. S. PIROLCORA [Concomitant]
     Dates: start: 2006, end: 2012
  15. HYDROXYINE [Concomitant]
     Route: 048
     Dates: start: 2006, end: 2012
  16. VERELAN [Concomitant]
     Dosage: 400 MG
     Route: 048
     Dates: start: 2006, end: 2012
  17. LASIX [Concomitant]
     Dosage: 40 MG
     Route: 048
  18. ALDACTONE [Concomitant]
     Dosage: 12.5 MG
     Route: 048
  19. PEPCID [Concomitant]
     Dosage: 40 MG
     Route: 048
  20. HYDRALAZINE [Concomitant]
  21. REGLAN [Concomitant]
  22. NIASPAN [Concomitant]
     Dosage: 2000 MG
     Route: 048
  23. ZETIA [Concomitant]
     Dosage: 10 MG
     Route: 048
  24. ANTIVERT [Concomitant]
     Indication: DIZZINESS
     Dosage: 75 MG
     Route: 048
  25. ANTIVERT [Concomitant]
     Indication: VERTIGO
  26. SCOPOLAMINE [Concomitant]
     Route: 062
  27. ATENOLOL [Concomitant]
     Dosage: 100 MG
     Route: 048
  28. ASPIRIN [Concomitant]
     Dosage: 325 MG
     Route: 048
  29. MIRALAX [Concomitant]
     Route: 048
  30. LIVALO [Concomitant]
     Dosage: 2 MG
  31. THEOPHYLLIN [Concomitant]
     Dosage: 400 MG
     Route: 048
  32. PERFOROMIST [Concomitant]
  33. PULMICORT [Concomitant]
     Route: 055
  34. ORETIC [Concomitant]
     Dosage: 12.5 MG
     Route: 048
  35. DUONEB [Concomitant]
  36. MEDROL DOSE PACK [Concomitant]
     Route: 048

REACTIONS (10)
  - Lower gastrointestinal haemorrhage [Recovered/Resolved]
  - Coagulopathy [Unknown]
  - Lower gastrointestinal haemorrhage [Recovered/Resolved]
  - Respiratory distress [Unknown]
  - Chronic obstructive pulmonary disease [Unknown]
  - Pain [Unknown]
  - Emotional distress [Unknown]
  - Increased tendency to bruise [Unknown]
  - Haematochezia [Unknown]
  - Gastritis [Unknown]
